FAERS Safety Report 4639359-9 (Version None)
Quarter: 2005Q2

REPORT INFORMATION
  Report Type: 
  Country: None (occurrence: None)
  Receive Date: 20050418
  Receipt Date: 20050406
  Transmission Date: 20051028
  Serious: Yes (Other)
  Sender: FDA-Public Use
  Company Number: 2005-BP-05685AU

PATIENT
  Age: 76 Year
  Sex: Female

DRUGS (2)
  1. MICARDIS [Suspect]
     Dosage: PO
     Route: 048
  2. PANAMAX (PARACETAMOL) [Suspect]
     Dosage: PO   APPROX. 4 YEARS
     Route: 048

REACTIONS (1)
  - ANAPHYLACTIC REACTION [None]
